FAERS Safety Report 5198362-3 (Version None)
Quarter: 2006Q4

REPORT INFORMATION
  Report Type: 
  Country: None (occurrence: None)
  Receive Date: 20061229
  Receipt Date: 20061205
  Transmission Date: 20070319
  Serious: No
  Sender: FDA-Public Use
  Company Number: 20063372

PATIENT
  Sex: Male

DRUGS (1)
  1. LIORESAL [Suspect]
     Indication: MUSCLE SPASTICITY
     Dosage: DAILY, INTRATHECAL
     Route: 037

REACTIONS (4)
  - CONDITION AGGRAVATED [None]
  - IRRITABILITY [None]
  - MUSCLE SPASTICITY [None]
  - VENTRICULOPERITONEAL SHUNT MALFUNCTION [None]
